FAERS Safety Report 9485961 (Version 3)
Quarter: 2013Q3

REPORT INFORMATION
  Report Type: Spontaneous
  Country: FR (occurrence: FR)
  Receive Date: 20130829
  Receipt Date: 20130921
  Transmission Date: 20140515
  Serious: Yes (Other)
  Sender: FDA-Public Use
  Company Number: FR-ROCHE-1262989

PATIENT
  Age: 70 Year
  Sex: Male

DRUGS (4)
  1. ZELBORAF [Suspect]
     Indication: NEOPLASM MALIGNANT
     Route: 048
     Dates: start: 20130731
  2. ZELBORAF [Suspect]
     Route: 048
  3. BISOPROLOL [Concomitant]
     Dosage: 5 MG,  1 DF IN THE MORNING
     Route: 048
  4. ATORVASTATIN [Concomitant]
     Dosage: 1 DF IN THE EVENING
     Route: 048

REACTIONS (3)
  - Rash vesicular [Recovered/Resolved]
  - Dry skin [Not Recovered/Not Resolved]
  - Diarrhoea [Recovering/Resolving]
